FAERS Safety Report 17533975 (Version 2)
Quarter: 2020Q1

REPORT INFORMATION
  Report Type: Report from Study
  Country: US (occurrence: US)
  Receive Date: 20200312
  Receipt Date: 20200326
  Transmission Date: 20200409
  Serious: Yes (Hospitalization, Other)
  Sender: FDA-Public Use
  Company Number: US-DSJP-DSU-2020-107954

PATIENT

DRUGS (3)
  1. PEXIDARTINIB [Suspect]
     Active Substance: PEXIDARTINIB
     Dosage: 400 MG, BID
     Route: 048
     Dates: start: 20200209
  2. PEXIDARTINIB [Suspect]
     Active Substance: PEXIDARTINIB
     Dosage: 1 TAB PO QAM, 2 TABS PO QPM
     Route: 048
     Dates: start: 20200224, end: 20200229
  3. PEXIDARTINIB [Suspect]
     Active Substance: PEXIDARTINIB
     Indication: NEOPLASM
     Dosage: 200MG QAM, 400MG QPM
     Route: 048
     Dates: start: 20200209

REACTIONS (9)
  - Back pain [Not Recovered/Not Resolved]
  - Hepatic enzyme increased [Not Recovered/Not Resolved]
  - Aspartate aminotransferase increased [Not Recovered/Not Resolved]
  - Blood bilirubin increased [Not Recovered/Not Resolved]
  - Aspartate aminotransferase abnormal [Not Recovered/Not Resolved]
  - Alanine aminotransferase increased [Not Recovered/Not Resolved]
  - Hepatic failure [Unknown]
  - Alanine aminotransferase abnormal [Not Recovered/Not Resolved]
  - Jaundice [Unknown]

NARRATIVE: CASE EVENT DATE: 2020
